FAERS Safety Report 6861355-1 (Version None)
Quarter: 2010Q3

REPORT INFORMATION
  Report Type: 
  Country: None (occurrence: None)
  Receive Date: 20100715
  Receipt Date: 20100701
  Transmission Date: 20110219
  Serious: Yes (Life-Threatening, Hospitalization)
  Sender: FDA-Public Use
  Company Number: 2010AP001354

PATIENT
  Age: 56 Year
  Sex: Male

DRUGS (8)
  1. ATORVASTATIN CALCIUM [Suspect]
     Dosage: 20 MG;
  2. PERINDOPRIL ERBUMINE [Suspect]
     Dosage: 4 MG;
  3. RANITIDINE HYDROCHLORIDE [Suspect]
     Dosage: 150 MG; BID
  4. INDAPAMIDE [Suspect]
     Dosage: 2.5 MG;
  5. ASPIRIN [Concomitant]
  6. EZETIMIBE [Concomitant]
  7. GLUCOSAMINE (GLUCOSAMINE) [Concomitant]
  8. GLYCERYL TRINITRATE (GLYCERYL TRINITRATE) [Concomitant]

REACTIONS (3)
  - HAEMODIALYSIS [None]
  - HYPOTENSION [None]
  - STEVENS-JOHNSON SYNDROME [None]
